FAERS Safety Report 9987191 (Version 1)
Quarter: 2014Q1

REPORT INFORMATION
  Report Type: Report from Study
  Country: US (occurrence: US)
  Receive Date: 20140307
  Receipt Date: 20140307
  Transmission Date: 20141002
  Serious: No
  Sender: FDA-Public Use
  Company Number: US-ABBVIE-13P-163-1080686-00

PATIENT
  Age: 47 Year
  Sex: Male

DRUGS (6)
  1. HUMIRA [Suspect]
     Indication: COLITIS ULCERATIVE
     Dosage: LOADING DOSE
     Dates: start: 20130418
  2. LIPITOR [Concomitant]
     Indication: CORONARY ARTERY DISEASE
  3. NIACIN [Concomitant]
     Indication: CORONARY ARTERY DISEASE
  4. ASPIRIN [Concomitant]
     Indication: PROPHYLAXIS
  5. LOPRESSOR [Concomitant]
     Indication: CORONARY ARTERY DISEASE
  6. LIALDA [Concomitant]
     Indication: COLITIS ULCERATIVE

REACTIONS (1)
  - Injection site bruising [Not Recovered/Not Resolved]
